FAERS Safety Report 20064544 (Version 1)
Quarter: 2021Q4

REPORT INFORMATION
  Report Type: Spontaneous
  Country: US (occurrence: None)
  Receive Date: 20211112
  Receipt Date: 20211112
  Transmission Date: 20220303
  Serious: Yes (Disabling)
  Sender: FDA-Public Use
  Company Number: None

PATIENT
  Age: 65 Year
  Sex: Female
  Weight: 114.3 kg

DRUGS (25)
  1. GABAPENTIN [Suspect]
     Active Substance: GABAPENTIN
     Indication: Anxiety
     Dosage: OTHER QUANTITY : 1 TABLET(S);?FREQUENCY : 3 TIMES A DAY;?
     Route: 048
     Dates: start: 20210917, end: 20211104
  2. DEVICE [Concomitant]
     Active Substance: DEVICE
  3. AMLODIPINE [Concomitant]
     Active Substance: AMLODIPINE BESYLATE
  4. BUPROPION HYDROCHLORIDE XL [Concomitant]
     Active Substance: BUPROPION HYDROCHLORIDE
  5. BUSPIRONE HCL [Concomitant]
     Active Substance: BUSPIRONE HYDROCHLORIDE
  6. DIVALPROEX SODIUM [Concomitant]
     Active Substance: DIVALPROEX SODIUM
  7. ESTRACE [Concomitant]
     Active Substance: ESTRADIOL
  8. LAMOTRIGINE [Concomitant]
     Active Substance: LAMOTRIGINE
  9. VRAYLAR [Concomitant]
     Active Substance: CARIPRAZINE
  10. LOSARTAN [Concomitant]
     Active Substance: LOSARTAN
  11. METHOCARBAMOL [Concomitant]
     Active Substance: METHOCARBAMOL
  12. CYCLOBENZAPRINE [Concomitant]
     Active Substance: CYCLOBENZAPRINE
  13. MELOXICAM [Concomitant]
     Active Substance: MELOXICAM
  14. TRAZODONE [Concomitant]
     Active Substance: TRAZODONE HYDROCHLORIDE
  15. OMEPRAZOLE [Concomitant]
     Active Substance: OMEPRAZOLE
  16. Lactose enzyme [Concomitant]
  17. ACETAMINOPHEN [Concomitant]
     Active Substance: ACETAMINOPHEN
  18. claritian [Concomitant]
  19. ASPIRIN [Concomitant]
     Active Substance: ASPIRIN
  20. VITAMINS D3 [Concomitant]
  21. B-100 [Concomitant]
  22. VITAMIN C [Concomitant]
     Active Substance: ASCORBIC ACID
  23. CALCIUM [Concomitant]
     Active Substance: CALCIUM
  24. MAGNESIUM [Concomitant]
     Active Substance: MAGNESIUM
  25. POTASSIUM [Concomitant]
     Active Substance: POTASSIUM

REACTIONS (2)
  - Oedema peripheral [None]
  - Rash erythematous [None]

NARRATIVE: CASE EVENT DATE: 20211023
